FAERS Safety Report 20598728 (Version 2)
Quarter: 2022Q1

REPORT INFORMATION
  Report Type: Spontaneous
  Country: US (occurrence: None)
  Receive Date: 20220315
  Receipt Date: 20220319
  Transmission Date: 20220423
  Serious: No
  Sender: FDA-Public Use
  Company Number: US-ROCHE-2958250

PATIENT
  Age: 16 Year
  Sex: Male

DRUGS (1)
  1. XOLAIR [Suspect]
     Active Substance: OMALIZUMAB
     Indication: Asthma
     Dosage: STRENGTH-75MG/0.5ML
     Route: 058
     Dates: start: 20211008

REACTIONS (1)
  - Fibrosis [Unknown]

NARRATIVE: CASE EVENT DATE: 20211008
